FAERS Safety Report 20797522 (Version 1)
Quarter: 2022Q2

REPORT INFORMATION
  Report Type: Spontaneous
  Country: JP (occurrence: None)
  Receive Date: 20220506
  Receipt Date: 20220506
  Transmission Date: 20220720
  Serious: Yes (Other)
  Sender: FDA-Public Use
  Company Number: 2022A170052

PATIENT
  Age: 90 Year
  Sex: Male

DRUGS (1)
  1. LOKELMA [Suspect]
     Active Substance: SODIUM ZIRCONIUM CYCLOSILICATE
     Dosage: DOSE UNKNOWN
     Route: 048

REACTIONS (2)
  - Cardiac failure congestive [Unknown]
  - Oedema [Unknown]
